FAERS Safety Report 25336768 (Version 1)
Quarter: 2025Q2

REPORT INFORMATION
  Report Type: Spontaneous
  Country: CA (occurrence: CA)
  Receive Date: 20250520
  Receipt Date: 20250520
  Transmission Date: 20250716
  Serious: Yes (Other)
  Sender: HIKMA
  Company Number: CA-HIKMA PHARMACEUTICALS USA INC.-CA-H14001-25-04324

PATIENT
  Sex: Male

DRUGS (17)
  1. ACER SACCHARUM POLLEN [Suspect]
     Active Substance: ACER SACCHARUM POLLEN
     Indication: Rhinitis allergic
     Route: 058
  2. ALLERGENIC EXTRACT- MITE [Suspect]
     Active Substance: ALLERGENIC EXTRACT- MITE
     Indication: Rhinitis allergic
     Route: 065
  3. GRASS POLLEN [Suspect]
     Active Substance: HOMEOPATHICS
     Indication: Rhinitis allergic
     Route: 065
  4. ARTEMISIA VULGARIS ROOT [Suspect]
     Active Substance: ARTEMISIA VULGARIS ROOT
     Indication: Rhinitis allergic
     Route: 058
  5. HERBALS [Suspect]
     Active Substance: HERBALS
     Indication: Rhinitis allergic
     Route: 058
  6. BETULA PENDULA POLLEN [Suspect]
     Active Substance: BETULA PENDULA POLLEN
     Indication: Rhinitis allergic
     Route: 058
  7. CARYA ILLINOINENSIS POLLEN [Suspect]
     Active Substance: CARYA ILLINOINENSIS POLLEN
     Indication: Rhinitis allergic
     Route: 058
  8. FAGUS SYLVATICA NUT [Suspect]
     Active Substance: FAGUS SYLVATICA NUT
     Indication: Rhinitis allergic
     Route: 058
  9. FRAXINUS AMERICANA BARK [Suspect]
     Active Substance: FRAXINUS AMERICANA BARK
     Indication: Rhinitis allergic
     Route: 058
  10. JUGLANS NIGRA POLLEN [Suspect]
     Active Substance: JUGLANS NIGRA POLLEN
     Indication: Rhinitis allergic
     Route: 058
  11. PHENOL [Suspect]
     Active Substance: PHENOL
     Indication: Rhinitis allergic
     Route: 058
  12. PLATANUS OCCIDENTALIS POLLEN [Suspect]
     Active Substance: PLATANUS OCCIDENTALIS POLLEN
     Indication: Rhinitis allergic
     Route: 058
  13. POPULUS DELTOIDES POLLEN [Suspect]
     Active Substance: POPULUS DELTOIDES POLLEN
     Indication: Rhinitis allergic
     Route: 058
  14. QUERCUS RUBRA POLLEN [Suspect]
     Active Substance: QUERCUS RUBRA POLLEN
     Indication: Rhinitis allergic
     Route: 058
  15. SALIX NIGRA BARK [Suspect]
     Active Substance: SALIX NIGRA BARK
     Indication: Rhinitis allergic
     Route: 058
  16. SODIUM CHLORIDE [Suspect]
     Active Substance: SODIUM CHLORIDE
     Indication: Rhinitis allergic
     Route: 065
  17. ULMUS AMERICANA POLLEN [Suspect]
     Active Substance: ULMUS AMERICANA POLLEN
     Indication: Rhinitis allergic
     Route: 058

REACTIONS (7)
  - Abdominal pain [Recovered/Resolved]
  - Anaphylactoid reaction [Recovered/Resolved]
  - Diarrhoea [Recovered/Resolved]
  - Nasal congestion [Recovered/Resolved]
  - Rash [Recovered/Resolved]
  - Overdose [Recovered/Resolved]
  - Product label confusion [Recovered/Resolved]
